FAERS Safety Report 26211134 (Version 1)
Quarter: 2025Q4

REPORT INFORMATION
  Report Type: Spontaneous
  Country: US (occurrence: US)
  Receive Date: 20251230
  Receipt Date: 20251230
  Transmission Date: 20260118
  Serious: Yes (Death)
  Sender: MERCK SHARP & DOHME LLC
  Company Number: US-009507513-2363869

PATIENT
  Age: 78 Year
  Sex: Female

DRUGS (1)
  1. BRIDION [Suspect]
     Active Substance: SUGAMMADEX SODIUM
     Dates: start: 2022

REACTIONS (1)
  - Death [Fatal]

NARRATIVE: CASE EVENT DATE: 20220101
